FAERS Safety Report 6839121-2 (Version None)
Quarter: 2010Q2

REPORT INFORMATION
  Report Type: 
  Country: None (occurrence: None)
  Receive Date: 20100629
  Receipt Date: 20100202
  Transmission Date: 20101027
  Serious: Yes (Other)
  Sender: FDA-Public Use
  Company Number: 2010016400

PATIENT
  Sex: Female

DRUGS (3)
  1. NICOTROL INHALER (NICOTINE) IMPREGNATED PAD [Suspect]
     Indication: SMOKING CESSATION THERAPY
     Dates: start: 20090101
  2. ABILIFY [Concomitant]
  3. EFFEXOR [Concomitant]

REACTIONS (1)
  - DEPENDENCE [None]
